FAERS Safety Report 23975820 (Version 3)
Quarter: 2024Q2

REPORT INFORMATION
  Report Type: Spontaneous
  Country: JP (occurrence: JP)
  Receive Date: 20240614
  Receipt Date: 20240628
  Transmission Date: 20240716
  Serious: Yes (Other)
  Sender: FDA-Public Use
  Company Number: JP-GILEAD-2024-0676920

PATIENT
  Age: 90 Year
  Sex: Male
  Weight: 66 kg

DRUGS (9)
  1. VEKLURY [Suspect]
     Active Substance: REMDESIVIR
     Indication: COVID-19 pneumonia
     Dosage: UNK
     Route: 042
     Dates: start: 20240605, end: 20240607
  2. VEKLURY [Suspect]
     Active Substance: REMDESIVIR
     Dosage: 200 MG
     Route: 042
     Dates: start: 20240611
  3. VEKLURY [Suspect]
     Active Substance: REMDESIVIR
     Dosage: UNK
     Route: 042
     Dates: end: 20240619
  4. LAGEVRIO [Concomitant]
     Active Substance: MOLNUPIRAVIR
     Dosage: UNK
     Route: 048
  5. DECADRON (DEXAMETHASONE SODIUM PHOSPHATE) [Concomitant]
     Active Substance: DEXAMETHASONE SODIUM PHOSPHATE
  6. PREDONINE [Concomitant]
     Active Substance: PREDNISOLONE
     Indication: Pneumocystis jirovecii pneumonia
     Dosage: 20 MG, BID
     Route: 048
  7. LANSOPRAZOLE [Concomitant]
     Active Substance: LANSOPRAZOLE
     Dosage: 15 MG, QD
     Route: 048
  8. PIPERACILLIN SODIUM [Concomitant]
     Active Substance: PIPERACILLIN SODIUM
     Indication: Pneumonia
     Dosage: 4.5 G, TID
     Dates: end: 20240614
  9. SULFAMETHOXAZOLE\TRIMETHOPRIM [Concomitant]
     Active Substance: SULFAMETHOXAZOLE\TRIMETHOPRIM
     Indication: Pneumocystis jirovecii pneumonia
     Route: 048

REACTIONS (7)
  - COVID-19 pneumonia [Recovering/Resolving]
  - Pneumonia aspiration [Recovering/Resolving]
  - Spinal compression fracture [Unknown]
  - Fall [Unknown]
  - Product dose omission in error [Recovered/Resolved]
  - Off label use [Unknown]
  - Incorrect product administration duration [Recovered/Resolved]

NARRATIVE: CASE EVENT DATE: 20240601
